FAERS Safety Report 7943198-0 (Version None)
Quarter: 2011Q4

REPORT INFORMATION
  Report Type: 
  Country: None (occurrence: None)
  Receive Date: 20111128
  Receipt Date: 20111118
  Transmission Date: 20120403
  Serious: Yes (Other)
  Sender: FDA-Public Use
  Company Number: PHHY2011FR101943

PATIENT
  Age: 47 Year
  Sex: Female

DRUGS (7)
  1. FLUOXETINE [Concomitant]
  2. CARBOCISTEINE [Concomitant]
  3. ONBREZ [Suspect]
     Indication: CHRONIC OBSTRUCTIVE PULMONARY DISEASE
     Dosage: 150 UG, QD
     Dates: start: 20111101
  4. LORMETAZEPAM [Concomitant]
  5. PRAZEPAM [Concomitant]
  6. ASPIRIN [Concomitant]
     Dosage: 3 DF, QD
  7. VENTOLIN [Concomitant]

REACTIONS (2)
  - PULMONARY CONGESTION [None]
  - BRONCHOSPASM [None]
